FAERS Safety Report 16031241 (Version 1)
Quarter: 2019Q1

REPORT INFORMATION
  Report Type: Report from Study
  Country: CA (occurrence: CA)
  Receive Date: 20190304
  Receipt Date: 20190304
  Transmission Date: 20190418
  Serious: Yes (Other)
  Sender: FDA-Public Use
  Company Number: CA-BRISTOL-MYERS SQUIBB COMPANY-BMS-2017-016944

PATIENT
  Age: 82 Year
  Sex: Female

DRUGS (2)
  1. ABATACEPT [Suspect]
     Active Substance: ABATACEPT
     Indication: RHEUMATOID ARTHRITIS
     Dosage: 750 MG, Q4WK
     Route: 042
     Dates: start: 20160202
  2. ABATACEPT [Suspect]
     Active Substance: ABATACEPT
     Indication: PRODUCT USED FOR UNKNOWN INDICATION
     Dosage: 500 MG, Q4WK
     Route: 042
     Dates: start: 20160202

REACTIONS (12)
  - Rash macular [Recovering/Resolving]
  - Dry eye [Unknown]
  - Discomfort [Unknown]
  - Pruritus [Unknown]
  - Dyspnoea [Unknown]
  - Rash [Unknown]
  - Systemic lupus erythematosus [Not Recovered/Not Resolved]
  - Cough [Unknown]
  - Rash generalised [Unknown]
  - Pyrexia [Unknown]
  - Tooth disorder [Unknown]
  - Oropharyngeal pain [Recovered/Resolved]

NARRATIVE: CASE EVENT DATE: 20170227
